FAERS Safety Report 10285955 (Version 1)
Quarter: 2014Q3

REPORT INFORMATION
  Report Type: Spontaneous
  Country: US (occurrence: None)
  Receive Date: 20140703
  Receipt Date: 20140703
  Transmission Date: 20150326
  Serious: Yes (Death)
  Sender: FDA-Public Use
  Company Number: 2014-US-008003

PATIENT
  Age: 49 Year
  Sex: Male

DRUGS (14)
  1. FAZACLO [Suspect]
     Active Substance: CLOZAPINE
     Indication: SCHIZOPHRENIA
     Route: 048
     Dates: start: 20110203, end: 20140621
  2. CLONAZEPAM (CLONAZEPAM) TABLET [Concomitant]
  3. CARBAMAZEPINE (CARBAMAZEPINE) TABLET [Concomitant]
  4. BENZTROPINE MESYLATE (BENZATROPINE MESILATE) TABLET [Concomitant]
  5. VITAMIN D3 (COLECALCIFEROL) TABLET [Concomitant]
  6. PROPRANOLOL HYDROCHLORIDE (PROPRANOLOL HYDROCHLORIDE) TABLET [Concomitant]
  7. FLUOXETINE HCL (FLUOXETINE HYDROCHLORIDE) CAPSULE [Concomitant]
  8. DOCUSATE SODIUM (DOCUSATE SODIUM) CAPSULE [Concomitant]
  9. DIVALPROEX SODIUM (VALPROATE SEMISODIUM) [Concomitant]
  10. LATUDA (LURASIDONE HYDROCHLORIDE) TABLET [Concomitant]
  11. LACTULOSE (LACTULOSE) SOLUTION [Concomitant]
  12. FLAXSEED PRIMROSE OIL (GAMOLENIC ACID, LINOLEIC ACID, LINOLENIC ACID) CAPSULE [Concomitant]
  13. MILK OF MAGNESIA (MAGNESIUM HYDROXIDE) SUSPENSION [Concomitant]
  14. SENEXON-S (DOCUSATE SODIUM, SENNOSIDE A+B) TABLET [Concomitant]

REACTIONS (2)
  - Ascites [None]
  - Pneumonia [None]
